FAERS Safety Report 15814352 (Version 4)
Quarter: 2019Q2

REPORT INFORMATION
  Report Type: Report from Study
  Country: US (occurrence: US)
  Receive Date: 20190111
  Receipt Date: 20190524
  Transmission Date: 20190711
  Serious: Yes (Other)
  Sender: FDA-Public Use
  Company Number: US-TEVA-2019-US-996939

PATIENT
  Sex: Female

DRUGS (1)
  1. CLARAVIS [Suspect]
     Active Substance: ISOTRETINOIN
     Dosage: CAPSULE STRENGTH : 30
     Route: 065
     Dates: start: 20180720, end: 201812

REACTIONS (2)
  - Foetal exposure timing unspecified [Unknown]
  - Unintended pregnancy [Unknown]
